FAERS Safety Report 12718465 (Version 2)
Quarter: 2016Q4

REPORT INFORMATION
  Report Type: Spontaneous
  Country: US (occurrence: US)
  Receive Date: 20160906
  Receipt Date: 20161208
  Transmission Date: 20170207
  Serious: Yes (Hospitalization)
  Sender: FDA-Public Use
  Company Number: US-AMGEN-USASP2016102402

PATIENT
  Age: 32 Year
  Sex: Female

DRUGS (15)
  1. BLINCYTO [Suspect]
     Active Substance: BLINATUMOMAB
     Indication: ACUTE LYMPHOCYTIC LEUKAEMIA
     Dosage: UNK
     Route: 065
     Dates: start: 20160725
  2. GABAPENTIN. [Concomitant]
     Active Substance: GABAPENTIN
  3. LANTUS [Concomitant]
     Active Substance: INSULIN GLARGINE
  4. CLARITIN [Concomitant]
     Active Substance: LORATADINE
  5. COLACE [Concomitant]
     Active Substance: DOCUSATE SODIUM
  6. NOVOLOG [Concomitant]
     Active Substance: INSULIN ASPART
  7. OXYCODONE [Concomitant]
     Active Substance: OXYCODONE
  8. SENNA [Concomitant]
     Active Substance: SENNA LEAF\SENNOSIDES\SENNOSIDES A AND B
  9. PEPCID [Concomitant]
     Active Substance: FAMOTIDINE
  10. ACYCLOVIR. [Concomitant]
     Active Substance: ACYCLOVIR
  11. CRESEMBA [Concomitant]
     Active Substance: ISAVUCONAZONIUM SULFATE
  12. SYNTHROID [Concomitant]
     Active Substance: LEVOTHYROXINE SODIUM
  13. ZOLOFT [Concomitant]
     Active Substance: SERTRALINE HYDROCHLORIDE
  14. BLINCYTO [Suspect]
     Active Substance: BLINATUMOMAB
     Dosage: 56 MUG, UNK
     Route: 065
  15. BACTRIM [Concomitant]
     Active Substance: SULFAMETHOXAZOLE\TRIMETHOPRIM

REACTIONS (4)
  - Cellulitis [Unknown]
  - Overdose [Not Recovered/Not Resolved]
  - Neutropenia [Not Recovered/Not Resolved]
  - White blood cell count decreased [Not Recovered/Not Resolved]

NARRATIVE: CASE EVENT DATE: 2016
